FAERS Safety Report 4526121-0 (Version None)
Quarter: 2004Q4

REPORT INFORMATION
  Report Type: 
  Country: None (occurrence: None)
  Receive Date: 20041214
  Receipt Date: 20041207
  Transmission Date: 20050328
  Serious: Yes (Death, Life-Threatening, Hospitalization)
  Sender: FDA-Public Use
  Company Number: US-BRISTOL-MYERS SQUIBB COMPANY-12787628

PATIENT
  Age: 56 Year
  Sex: Male
  Weight: 73 kg

DRUGS (3)
  1. ERBITUX [Suspect]
     Indication: NEOPLASM MALIGNANT
     Route: 042
     Dates: start: 20041123, end: 20041123
  2. BENADRYL [Concomitant]
     Indication: PREMEDICATION
     Dates: start: 20041123, end: 20041123
  3. TYLENOL (CAPLET) [Concomitant]
     Indication: PREMEDICATION
     Dates: start: 20041123, end: 20041123

REACTIONS (2)
  - CARDIAC ARREST [None]
  - DEATH [None]
